FAERS Safety Report 4437443-6 (Version None)
Quarter: 2004Q3

REPORT INFORMATION
  Report Type: 
  Country: None (occurrence: None)
  Receive Date: 20040830
  Receipt Date: 20040818
  Transmission Date: 20050211
  Serious: Yes (Death)
  Sender: FDA-Public Use
  Company Number: JP-MERCK-0408USA01868

PATIENT
  Age: 52 Year
  Sex: Male

DRUGS (4)
  1. PEPCID [Suspect]
     Route: 048
     Dates: start: 20040601, end: 20040817
  2. PREDONINE [Concomitant]
     Route: 048
  3. UFT [Suspect]
     Route: 048
     Dates: end: 20040817
  4. SELBEX [Concomitant]
     Route: 048

REACTIONS (1)
  - GRANULOCYTOPENIA [None]
